FAERS Safety Report 4434325-0 (Version None)
Quarter: 2004Q3

REPORT INFORMATION
  Report Type: 
  Country: None (occurrence: None)
  Receive Date: 20040726
  Receipt Date: 20040421
  Transmission Date: 20050211
  Serious: No
  Sender: FDA-Public Use
  Company Number: US_0403101354

PATIENT
  Age: 59 Year
  Sex: Female
  Weight: 50 kg

DRUGS (19)
  1. FORTEO [Suspect]
     Indication: OSTEOPOROSIS
     Dosage: 2 UG/L DAY
     Dates: start: 20040128
  2. PERCOCET [Concomitant]
  3. PREDNISONE [Concomitant]
  4. LOMOTIL [Concomitant]
  5. HYDROCHLOROTHIAZIDE [Concomitant]
  6. ESTROTEST [Concomitant]
  7. K-DUR 10 [Concomitant]
  8. QUININE [Concomitant]
  9. XANAX [Concomitant]
  10. VICODIN [Concomitant]
  11. VITAMIN A [Concomitant]
  12. VITAMIN B-12 [Concomitant]
  13. VITAMIN C [Concomitant]
  14. CALCIUM [Concomitant]
  15. VITAMIN D [Concomitant]
  16. GARLIC [Concomitant]
  17. ZINC [Concomitant]
  18. MAGNESIUM [Concomitant]
  19. ACTONEL [Concomitant]

REACTIONS (4)
  - BACK PAIN [None]
  - BLOOD CALCIUM DECREASED [None]
  - INJECTION SITE HAEMORRHAGE [None]
  - PAIN IN EXTREMITY [None]
